FAERS Safety Report 9879717 (Version 1)
Quarter: 2014Q1

REPORT INFORMATION
  Report Type: Spontaneous
  Country: GB (occurrence: GB)
  Receive Date: 20140206
  Receipt Date: 20140206
  Transmission Date: 20141002
  Serious: Yes (Hospitalization)
  Sender: FDA-Public Use
  Company Number: PHHY2014GB011594

PATIENT
  Age: 77 Year
  Sex: Female

DRUGS (10)
  1. BISOPROLOL [Suspect]
     Indication: HYPERTENSION
     Dosage: 5 MG, QD
     Route: 048
     Dates: end: 20140119
  2. ASPIRIN [Concomitant]
  3. ATORVASTATIN [Concomitant]
  4. CARBAMAZEPINE [Concomitant]
  5. INDAPAMIDE [Concomitant]
  6. AMLODIPINE [Concomitant]
  7. PREDNISOLONE [Concomitant]
  8. LEVOTHYROXINE [Concomitant]
  9. LISINOPRIL [Concomitant]
  10. ALENDRONIC ACID [Concomitant]

REACTIONS (3)
  - Atrioventricular block first degree [Recovered/Resolved]
  - Syncope [Unknown]
  - Sinus bradycardia [Recovered/Resolved]
